FAERS Safety Report 6857693-9 (Version None)
Quarter: 2010Q3

REPORT INFORMATION
  Report Type: 
  Country: None (occurrence: None)
  Receive Date: 20100719
  Receipt Date: 20080128
  Transmission Date: 20110219
  Serious: No
  Sender: FDA-Public Use
  Company Number: US-PFIZER INC-2008010044

PATIENT
  Sex: Female
  Weight: 87.3 kg

DRUGS (8)
  1. CHANTIX [Suspect]
     Indication: SMOKING CESSATION THERAPY
  2. ABILIFY [Concomitant]
  3. LEXAPRO [Concomitant]
  4. PROPRANOLOL [Concomitant]
  5. AMITRIPTYLINE HYDROCHLORIDE [Concomitant]
  6. FLEXERIL [Concomitant]
  7. KLONOPIN [Concomitant]
  8. VICODIN [Concomitant]
     Indication: INTERVERTEBRAL DISC PROTRUSION

REACTIONS (1)
  - VOMITING [None]
